FAERS Safety Report 19097376 (Version 2)
Quarter: 2021Q2

REPORT INFORMATION
  Report Type: Spontaneous
  Country: GB (occurrence: GB)
  Receive Date: 20210406
  Receipt Date: 20210423
  Transmission Date: 20210717
  Serious: Yes (Other)
  Sender: FDA-Public Use
  Company Number: GB-PFIZER INC-2021349368

PATIENT
  Age: 27 Year
  Sex: Male

DRUGS (8)
  1. VINCRISTINE SULFATE. [Suspect]
     Active Substance: VINCRISTINE SULFATE
     Dosage: UNK (THIRD COURSE)
     Dates: start: 197606
  2. MUSTINE HCL [Concomitant]
     Dosage: UNK (UNK (THE DOSES OF VINCRISTINE AND MUSTINE WERE REPEATED AFTER 14 DAYS. A SECOND COURSE OF TREAT
     Dates: start: 197605
  3. PROCARBAZINE [Concomitant]
     Active Substance: PROCARBAZINE
     Indication: HODGKIN^S DISEASE
     Dosage: 200 MG, DAILY
     Route: 048
     Dates: start: 197404
  4. MUSTINE HCL [Concomitant]
     Dosage: UNK (THIRD COURSE)
     Dates: start: 197606
  5. MUSTINE HCL [Concomitant]
     Indication: HODGKIN^S DISEASE
     Dosage: 10.8 MG, CYCLIC (DOSES WERE REPEATED AFTER SEVEN DAYS)
     Dates: start: 197404
  6. VINCRISTINE SULFATE. [Suspect]
     Active Substance: VINCRISTINE SULFATE
     Dosage: UNK (THE DOSES OF VINCRISTINE AND MUSTINE WERE REPEATED AFTER 14 DAYS. A SECOND COURSE OF TREATMENT
     Dates: start: 197605
  7. VINCRISTINE SULFATE. [Suspect]
     Active Substance: VINCRISTINE SULFATE
     Indication: HODGKIN^S DISEASE
     Dosage: 2.5 MG, CYCLIC (DOSES WERE REPEATED AFTER SEVEN DAYS)
     Route: 042
     Dates: start: 197404
  8. PREDNISONE. [Concomitant]
     Active Substance: PREDNISONE
     Indication: HODGKIN^S DISEASE
     Dosage: 45 MG, DAILY
     Route: 048

REACTIONS (1)
  - Vagus nerve paralysis [Recovered/Resolved]
